FAERS Safety Report 22170645 (Version 1)
Quarter: 2023Q2

REPORT INFORMATION
  Report Type: Spontaneous
  Country: US (occurrence: US)
  Receive Date: 20230404
  Receipt Date: 20230404
  Transmission Date: 20230721
  Serious: Yes (Other)
  Sender: FDA-Public Use
  Company Number: US-JNJFOC-20230369483

PATIENT

DRUGS (1)
  1. MOTRIN [Suspect]
     Active Substance: IBUPROFEN
     Indication: Product used for unknown indication
     Route: 065

REACTIONS (5)
  - Kidney fibrosis [Recovering/Resolving]
  - Illness [Recovering/Resolving]
  - Blood urine present [Recovering/Resolving]
  - Multi-organ disorder [Recovering/Resolving]
  - Vein collapse [Recovering/Resolving]
